FAERS Safety Report 4492892-5 (Version None)
Quarter: 2004Q4

REPORT INFORMATION
  Report Type: 
  Country: None (occurrence: None)
  Receive Date: 20041104
  Receipt Date: 20041013
  Transmission Date: 20050328
  Serious: Yes (Hospitalization)
  Sender: FDA-Public Use
  Company Number: CN-MERCK-0410CHN00042

PATIENT
  Age: 51 Year
  Sex: Female

DRUGS (3)
  1. CRIXIVAN [Suspect]
     Indication: PROPHYLAXIS AGAINST HIV INFECTION
     Route: 048
     Dates: start: 20040901
  2. LAMIVUDINE [Concomitant]
     Route: 065
  3. [THERAPY UNSPECIFIED] [Concomitant]
     Route: 065

REACTIONS (6)
  - ABDOMINAL PAIN UPPER [None]
  - INCREASED APPETITE [None]
  - NAUSEA [None]
  - RENAL COLIC [None]
  - RENAL HYDROCELE [None]
  - URINARY TRACT INFECTION [None]
